FAERS Safety Report 7779587-7 (Version None)
Quarter: 2011Q3

REPORT INFORMATION
  Report Type: 
  Country: None (occurrence: None)
  Receive Date: 20110927
  Receipt Date: 20110915
  Transmission Date: 20111222
  Serious: Yes (Other)
  Sender: FDA-Public Use
  Company Number: AR-BAYER-2011-081365

PATIENT
  Age: 44 Year
  Sex: Female
  Weight: 65 kg

DRUGS (2)
  1. T4 [Concomitant]
     Indication: HYPOTHYROIDISM
     Route: 048
  2. MIRENA [Suspect]
     Dosage: 20 MCG/24HR, CONT
     Route: 015
     Dates: start: 20080101

REACTIONS (3)
  - BREAST CANCER [None]
  - PROGESTERONE RECEPTOR ASSAY POSITIVE [None]
  - OESTROGEN RECEPTOR ASSAY POSITIVE [None]
